FAERS Safety Report 11346289 (Version 1)
Quarter: 2015Q3

REPORT INFORMATION
  Report Type: Spontaneous
  Country: US (occurrence: US)
  Receive Date: 20150803
  Receipt Date: 20150803
  Transmission Date: 20151125
  Serious: No
  Sender: FDA-Public Use
  Company Number: US-ELI_LILLY_AND_COMPANY-US201007005213

PATIENT
  Sex: Female

DRUGS (1)
  1. STRATTERA [Suspect]
     Active Substance: ATOMOXETINE HYDROCHLORIDE
     Indication: DISTURBANCE IN ATTENTION
     Dosage: 100 MG, UNK

REACTIONS (2)
  - Hypoacusis [Not Recovered/Not Resolved]
  - Road traffic accident [Recovered/Resolved with Sequelae]
